FAERS Safety Report 8063994-1 (Version None)
Quarter: 2012Q1

REPORT INFORMATION
  Report Type: 
  Country: None (occurrence: None)
  Receive Date: 20120123
  Receipt Date: 20120116
  Transmission Date: 20120608
  Serious: Yes (Other)
  Sender: FDA-Public Use
  Company Number: US-ABBOTT-12P-163-0894498-00

PATIENT
  Sex: Female
  Weight: 70 kg

DRUGS (18)
  1. VITAMIN TAB [Concomitant]
     Indication: SUPPLEMENTATION THERAPY
  2. TAMOXIFEN CITRATE [Concomitant]
     Indication: BREAST CANCER
  3. CRESTOR [Concomitant]
     Indication: BLOOD CHOLESTEROL INCREASED
  4. DILTIAZEM/HCTZ [Concomitant]
     Indication: HYPERTENSION
  5. NASACORT [Concomitant]
     Indication: HYPERSENSITIVITY
  6. BIOTIN [Concomitant]
     Indication: SUPPLEMENTATION THERAPY
  7. DOXYCYCLINE [Concomitant]
     Indication: PRODUCT USED FOR UNKNOWN INDICATION
  8. OMEGA VITAMIN [Concomitant]
     Indication: SUPPLEMENTATION THERAPY
  9. HUMIRA [Suspect]
     Indication: PSORIASIS
     Route: 058
     Dates: start: 20080101, end: 20120110
  10. HUMIRA [Suspect]
     Indication: PSORIATIC ARTHROPATHY
  11. ZYRTEC [Concomitant]
     Indication: HYPERSENSITIVITY
  12. CALCIUM [Concomitant]
     Indication: SUPPLEMENTATION THERAPY
  13. ASPIRIN [Concomitant]
     Indication: PRODUCT USED FOR UNKNOWN INDICATION
  14. EPINEPHRINE [Suspect]
     Indication: URTICARIA
     Dates: start: 20120113, end: 20120113
  15. TURMERIC [Concomitant]
     Indication: SUPPLEMENTATION THERAPY
  16. BENADRYL [Suspect]
     Indication: URTICARIA
     Dates: start: 20120113, end: 20120113
  17. LOSARTAN POTASSIUM [Concomitant]
     Indication: HYPERTENSION
  18. TACLONEX [Concomitant]
     Indication: PSORIASIS

REACTIONS (7)
  - DYSPHAGIA [None]
  - HYPOAESTHESIA [None]
  - URTICARIA [None]
  - ERYTHEMA [None]
  - ANGIOEDEMA [None]
  - DYSPNOEA [None]
  - PHARYNGEAL ERYTHEMA [None]
